FAERS Safety Report 9476827 (Version 1)
Quarter: 2013Q3

REPORT INFORMATION
  Report Type: Spontaneous
  Country: US (occurrence: US)
  Receive Date: 20130826
  Receipt Date: 20130826
  Transmission Date: 20140515
  Serious: No
  Sender: FDA-Public Use
  Company Number: US-TARO-2012P1050776

PATIENT
  Age: 44 Year
  Sex: Female
  Weight: 75.3 kg

DRUGS (3)
  1. CLOBETASOL PROPIONATE [Suspect]
     Indication: LICHEN PLANUS
     Route: 061
     Dates: start: 20120719, end: 20120719
  2. MOTRIN [Concomitant]
  3. LOESTRIN [Concomitant]

REACTIONS (4)
  - Nausea [Recovered/Resolved]
  - Palpitations [Recovering/Resolving]
  - Insomnia [Recovered/Resolved]
  - Off label use [Recovered/Resolved]
